FAERS Safety Report 5562407-9 (Version None)
Quarter: 2007Q4

REPORT INFORMATION
  Report Type: 
  Country: None (occurrence: None)
  Receive Date: 20071215
  Receipt Date: 20070413
  Transmission Date: 20080405
  Serious: No
  Sender: FDA-Public Use
  Company Number: US-AMGEN-STX219762

PATIENT
  Sex: Female

DRUGS (3)
  1. ENBREL [Suspect]
     Indication: PSORIASIS
     Route: 058
     Dates: start: 20060225
  2. ENBREL [Suspect]
     Indication: PSORIATIC ARTHROPATHY
  3. CYCLOSPORINE [Concomitant]
     Route: 065
     Dates: start: 20050101

REACTIONS (3)
  - BLOOD PRESSURE INCREASED [None]
  - DIABETES MELLITUS [None]
  - PSORIASIS [None]
